FAERS Safety Report 18769348 (Version 3)
Quarter: 2022Q1

REPORT INFORMATION
  Report Type: Spontaneous
  Country: US (occurrence: US)
  Receive Date: 20210121
  Receipt Date: 20220307
  Transmission Date: 20220423
  Serious: Yes (Other)
  Sender: FDA-Public Use
  Company Number: US-PFIZER INC-2020465073

PATIENT
  Age: 67 Year
  Sex: Female
  Weight: 87.54 kg

DRUGS (2)
  1. ARTHROTEC [Suspect]
     Active Substance: DICLOFENAC SODIUM\MISOPROSTOL
     Indication: Shoulder operation
     Dosage: UNK
     Route: 048
  2. ARTHROTEC [Suspect]
     Active Substance: DICLOFENAC SODIUM\MISOPROSTOL
     Indication: Arthritis
     Dosage: 1 DF, 2X/DAY

REACTIONS (2)
  - Shoulder operation [Unknown]
  - Paranoia [Unknown]

NARRATIVE: CASE EVENT DATE: 20200101
